FAERS Safety Report 16872264 (Version 1)
Quarter: 2019Q4

REPORT INFORMATION
  Report Type: Spontaneous
  Country: US (occurrence: US)
  Receive Date: 20191001
  Receipt Date: 20191001
  Transmission Date: 20200122
  Serious: Yes (Other)
  Sender: FDA-Public Use
  Company Number: US-SA-2019SA268297

PATIENT
  Age: 65 Year
  Sex: Female

DRUGS (2)
  1. LOVENOX [Suspect]
     Active Substance: ENOXAPARIN SODIUM
     Dosage: 80 MG, UNK
     Route: 065
  2. LOVENOX [Suspect]
     Active Substance: ENOXAPARIN SODIUM
     Dosage: 60 MG, Q12H
     Route: 065
     Dates: start: 2003

REACTIONS (7)
  - Fear [Unknown]
  - Product availability issue [Unknown]
  - Extra dose administered [Unknown]
  - Injection site phlebitis [Unknown]
  - Pulmonary thrombosis [Unknown]
  - Cardiac aneurysm [Unknown]
  - Anxiety [Unknown]
